FAERS Safety Report 16785415 (Version 1)
Quarter: 2019Q3

REPORT INFORMATION
  Report Type: Spontaneous
  Country: US (occurrence: US)
  Receive Date: 20190717
  Receipt Date: 20190717
  Transmission Date: 20191005
  Serious: Yes (Life-Threatening, Hospitalization)
  Sender: FDA-Public Use
  Company Number: None

PATIENT

DRUGS (4)
  1. ATORVASTATIN [Suspect]
     Active Substance: ATORVASTATIN
  2. LOSARTAN. [Suspect]
     Active Substance: LOSARTAN
  3. AZITHROMYCIN ANHYDROUS. [Concomitant]
     Active Substance: AZITHROMYCIN ANHYDROUS
  4. AMIODARONE [Suspect]
     Active Substance: AMIODARONE

REACTIONS (7)
  - Asthenia [None]
  - Dizziness [None]
  - Balance disorder [None]
  - Electroconvulsive therapy [None]
  - Recalled product [None]
  - Heart valve replacement [None]
  - Fatigue [None]

NARRATIVE: CASE EVENT DATE: 20190319
